FAERS Safety Report 8554710-5 (Version None)
Quarter: 2012Q3

REPORT INFORMATION
  Report Type: 
  Country: None (occurrence: None)
  Receive Date: 20120731
  Receipt Date: 20120723
  Transmission Date: 20120928
  Serious: Yes (Hospitalization, Other)
  Sender: FDA-Public Use
  Company Number: US-ABBOTT-12P-163-0960176-00

PATIENT
  Sex: Female
  Weight: 64.468 kg

DRUGS (7)
  1. APRISO [Concomitant]
     Indication: CROHN'S DISEASE
  2. SOMA [Concomitant]
     Indication: CROHN'S DISEASE
  3. LORTAB [Concomitant]
     Indication: PAIN
  4. AMBIEN [Concomitant]
     Indication: INSOMNIA
  5. HUMIRA [Suspect]
     Indication: CROHN'S DISEASE
     Dates: start: 20110701
  6. PROTONIX [Concomitant]
     Indication: CROHN'S DISEASE
  7. LISINOPRIL [Concomitant]
     Indication: HYPERTENSION

REACTIONS (4)
  - CONVULSION [None]
  - PAIN [None]
  - INTESTINAL RESECTION [None]
  - CROHN'S DISEASE [None]
